FAERS Safety Report 6108386-7 (Version None)
Quarter: 2009Q1

REPORT INFORMATION
  Report Type: 
  Country: None (occurrence: None)
  Receive Date: 20090309
  Receipt Date: 20090224
  Transmission Date: 20090719
  Serious: Yes (Other)
  Sender: FDA-Public Use
  Company Number: PHHY2009ES06772

PATIENT
  Age: 83 Year
  Sex: Female

DRUGS (6)
  1. SINTROM UNO [Interacting]
     Dosage: UNK
     Route: 048
     Dates: start: 20060101
  2. SINTROM UNO [Interacting]
     Dosage: 2 MG
     Dates: start: 20081010
  3. SINTROM UNO [Interacting]
     Dosage: UNK
     Dates: start: 20081112
  4. EXELON [Suspect]
     Dosage: 1.5 MG
     Dates: start: 20081010
  5. EXELON [Interacting]
     Dosage: 6 MG/DAILY
     Dates: end: 20081112
  6. DONEPEZIL HCL [Concomitant]

REACTIONS (5)
  - DRUG INTERACTION [None]
  - HALLUCINATION [None]
  - INTERNATIONAL NORMALISED RATIO INCREASED [None]
  - NAUSEA [None]
  - VOMITING [None]
